FAERS Safety Report 5343959-0 (Version None)
Quarter: 2007Q2

REPORT INFORMATION
  Report Type: 
  Country: None (occurrence: None)
  Receive Date: 20070604
  Receipt Date: 20070508
  Transmission Date: 20071010
  Serious: Yes (Hospitalization)
  Sender: FDA-Public Use
  Company Number: PHBS2007FI07092

PATIENT
  Sex: Male

DRUGS (2)
  1. SANDOSTATIN LAR [Suspect]
     Indication: DIARRHOEA
  2. SANDOSTATIN [Suspect]
     Indication: DIARRHOEA

REACTIONS (4)
  - DIARRHOEA [None]
  - DISEASE RECURRENCE [None]
  - GASTROINTESTINAL HYPOMOTILITY [None]
  - INTESTINAL OBSTRUCTION [None]
